FAERS Safety Report 5571460-8 (Version None)
Quarter: 2007Q4

REPORT INFORMATION
  Report Type: 
  Country: None (occurrence: None)
  Receive Date: 20071221
  Receipt Date: 20071218
  Transmission Date: 20080405
  Serious: Yes (Other)
  Sender: FDA-Public Use
  Company Number: PHEH2007US13162

PATIENT
  Sex: Female

DRUGS (2)
  1. TEGRETOL [Suspect]
     Dates: start: 19930101
  2. KEPPRA [Suspect]
     Indication: CONVULSION

REACTIONS (4)
  - CONVULSION [None]
  - DEPRESSION [None]
  - OSTEOPENIA [None]
  - SUICIDAL IDEATION [None]
